FAERS Safety Report 5597612-9 (Version None)
Quarter: 2008Q1

REPORT INFORMATION
  Report Type: 
  Country: None (occurrence: None)
  Receive Date: 20080121
  Receipt Date: 20080121
  Transmission Date: 20080703
  Serious: Yes (Other)
  Sender: FDA-Public Use
  Company Number: D0055861A

PATIENT
  Age: 53 Year
  Sex: Female

DRUGS (1)
  1. PAROXETIN RATIOPHARM [Suspect]
     Dosage: 20MG PER DAY
     Route: 048
     Dates: start: 20050101

REACTIONS (1)
  - MEMORY IMPAIRMENT [None]
